FAERS Safety Report 10176877 (Version 2)
Quarter: 2016Q1

REPORT INFORMATION
  Report Type: Spontaneous
  Country: DK (occurrence: DK)
  Receive Date: 20140516
  Receipt Date: 20160127
  Transmission Date: 20160525
  Serious: Yes (Life-Threatening, Hospitalization)
  Sender: FDA-Public Use
  Company Number: DK-NOVOPROD-410307

PATIENT
  Age: 67 Year
  Sex: Female

DRUGS (1)
  1. ESTROFEM [Suspect]
     Active Substance: ESTRADIOL CYPIONATE
     Indication: HOT FLUSH
     Dosage: 1 TABLET TWICE A WEEK
     Route: 048
     Dates: start: 199501, end: 20140217

REACTIONS (2)
  - Pulmonary embolism [Recovered/Resolved]
  - Pulmonary embolism [Recovered/Resolved]

NARRATIVE: CASE EVENT DATE: 2010
